FAERS Safety Report 7051481-9 (Version None)
Quarter: 2010Q4

REPORT INFORMATION
  Report Type: 
  Country: None (occurrence: None)
  Receive Date: 20101019
  Receipt Date: 20101007
  Transmission Date: 20110411
  Serious: Yes (Hospitalization)
  Sender: FDA-Public Use
  Company Number: B0677234A

PATIENT
  Age: 67 Year
  Sex: Male
  Weight: 54 kg

DRUGS (8)
  1. ROPINIROLE [Suspect]
     Route: 048
  2. PRAMIPEXOLE [Suspect]
  3. L-DOPA [Suspect]
     Dosage: 300MG PER DAY
     Route: 048
  4. PRAMIPEXOLE DIHYDROCHLORIDE [Suspect]
     Dosage: 3MG PER DAY
     Route: 048
  5. SELEGILINE HYDROCHLORIDE [Suspect]
     Dosage: 7.5MG PER DAY
  6. ENTACAPONE [Suspect]
     Dosage: 300MG PER DAY
     Route: 048
  7. DOPAMINE [Suspect]
  8. SELEGILINE HCL [Suspect]
     Dosage: 7.5MG PER DAY
     Route: 048

REACTIONS (4)
  - DEPRESSION [None]
  - GAIT DISTURBANCE [None]
  - HYPOKINESIA [None]
  - PATHOLOGICAL GAMBLING [None]
